FAERS Safety Report 25146199 (Version 1)
Quarter: 2025Q2

REPORT INFORMATION
  Report Type: Spontaneous
  Country: US (occurrence: US)
  Receive Date: 20250401
  Receipt Date: 20250401
  Transmission Date: 20250717
  Serious: Yes (Death)
  Sender: MYLAN
  Company Number: US-MYLANLABS-2025M1025292

PATIENT
  Age: 37 Year

DRUGS (4)
  1. FENTANYL [Suspect]
     Active Substance: FENTANYL
     Indication: Product used for unknown indication
  2. COCAINE [Suspect]
     Active Substance: COCAINE
     Indication: Product used for unknown indication
  3. AMPHETAMINE [Suspect]
     Active Substance: AMPHETAMINE
     Indication: Product used for unknown indication
  4. METHAMPHETAMINE [Suspect]
     Active Substance: METHAMPHETAMINE
     Indication: Product used for unknown indication

REACTIONS (2)
  - Road traffic accident [Fatal]
  - Substance abuse [Fatal]
